FAERS Safety Report 11088146 (Version 6)
Quarter: 2016Q3

REPORT INFORMATION
  Report Type: Spontaneous
  Country: IE (occurrence: IE)
  Receive Date: 20150504
  Receipt Date: 20160927
  Transmission Date: 20161109
  Serious: Yes (Hospitalization)
  Sender: FDA-Public Use
  Company Number: IE-PFIZER INC-2015147111

PATIENT
  Age: 61 Year
  Sex: Female

DRUGS (9)
  1. EMAZOLE [Concomitant]
     Dosage: 40 MG, AS NEEDED
  2. CAPRIN [Concomitant]
     Active Substance: ASPIRIN
     Dosage: 75 MG, UNK
  3. CODINEX [Concomitant]
     Dosage: 15 MG, 1X/DAY
  4. AMLODIPINE [Concomitant]
     Active Substance: AMLODIPINE BESYLATE
     Dosage: 5 MG, 1X/DAY
  5. ATORVASTATIN [Concomitant]
     Active Substance: ATORVASTATIN
     Dosage: 10 MG, 1X/DAY
  6. XALKORI [Suspect]
     Active Substance: CRIZOTINIB
     Dosage: 200 MG, 2X/DAY
  7. FOLIC ACID. [Concomitant]
     Active Substance: FOLIC ACID
  8. XALKORI [Suspect]
     Active Substance: CRIZOTINIB
     Indication: NON-SMALL CELL LUNG CANCER
     Dosage: 250 MG, 2X/DAY
     Dates: start: 20150330
  9. MAXOLON [Concomitant]
     Active Substance: METOCLOPRAMIDE HYDROCHLORIDE
     Dosage: 10 MG, 3X/DAY

REACTIONS (4)
  - Fatigue [Unknown]
  - Pyrexia [Recovered/Resolved]
  - Constipation [Unknown]
  - Infection [Recovered/Resolved]
